FAERS Safety Report 4632558-1 (Version None)
Quarter: 2005Q2

REPORT INFORMATION
  Report Type: 
  Country: None (occurrence: None)
  Receive Date: 20050411
  Receipt Date: 20050302
  Transmission Date: 20051028
  Serious: Yes (Life-Threatening, Hospitalization, Disabling)
  Sender: FDA-Public Use
  Company Number: US-MERCK-0503USA00336

PATIENT
  Age: 86 Year
  Sex: Female
  Weight: 48 kg

DRUGS (19)
  1. VIOXX [Suspect]
     Indication: OSTEOARTHRITIS
     Route: 048
     Dates: start: 20030701
  2. VIOXX [Suspect]
     Route: 048
     Dates: start: 20040201, end: 20040901
  3. VIOXX [Suspect]
     Indication: BACK PAIN
     Route: 048
     Dates: start: 20030701
  4. VIOXX [Suspect]
     Route: 048
     Dates: start: 20040201, end: 20040901
  5. PREVACID [Concomitant]
     Indication: GASTROOESOPHAGEAL REFLUX DISEASE
     Route: 048
     Dates: start: 20030101
  6. ATENOLOL [Concomitant]
     Route: 048
     Dates: end: 20030728
  7. MIACALCIN [Concomitant]
     Route: 065
  8. FOSAMAX [Concomitant]
     Indication: OSTEOPOROSIS
     Route: 048
     Dates: start: 20041201
  9. CELEXA [Concomitant]
     Route: 048
     Dates: start: 20040601
  10. LEVSIN [Concomitant]
     Route: 065
  11. HYDRODIURIL [Concomitant]
     Route: 048
     Dates: start: 20030710, end: 20030728
  12. VITAMIN D (UNSPECIFIED) [Concomitant]
     Route: 065
  13. VITAMINS (UNSPECIFIED) [Concomitant]
     Route: 065
  14. CALCIUM (UNSPECIFIED) [Concomitant]
     Route: 065
  15. PERCOCET [Concomitant]
     Indication: BACK PAIN
     Route: 048
     Dates: start: 20030710
  16. PRINIVIL [Concomitant]
     Route: 048
     Dates: end: 20040301
  17. LASIX [Concomitant]
     Route: 048
     Dates: end: 20040301
  18. LASIX [Concomitant]
     Route: 065
     Dates: start: 20040501
  19. NORVASC [Concomitant]
     Indication: HYPERTENSION
     Route: 048
     Dates: start: 20040301

REACTIONS (30)
  - ANGINA PECTORIS [None]
  - ARTHRALGIA [None]
  - ARTHRITIS BACTERIAL [None]
  - ASTHENIA [None]
  - BACK PAIN [None]
  - BLOOD PRESSURE INCREASED [None]
  - CARDIAC FAILURE CONGESTIVE [None]
  - CHEST PAIN [None]
  - CHEST WALL PAIN [None]
  - DIARRHOEA [None]
  - DIFFICULTY IN WALKING [None]
  - DIZZINESS [None]
  - DYSPNOEA EXERTIONAL [None]
  - EAR INFECTION [None]
  - EAR PRURITUS [None]
  - FALL [None]
  - FATIGUE [None]
  - HAEMORRHOIDS [None]
  - HEADACHE [None]
  - LEUKOPLAKIA ORAL [None]
  - OEDEMA PERIPHERAL [None]
  - OTORRHOEA [None]
  - PANIC ATTACK [None]
  - RENAL FAILURE [None]
  - RIB FRACTURE [None]
  - SINUSITIS [None]
  - SKIN LACERATION [None]
  - URINARY TRACT INFECTION [None]
  - VERTIGO [None]
  - VISION BLURRED [None]
